FAERS Safety Report 14689733 (Version 1)
Quarter: 2018Q1

REPORT INFORMATION
  Report Type: Spontaneous
  Country: US (occurrence: US)
  Receive Date: 20180327
  Receipt Date: 20180327
  Transmission Date: 20180509
  Serious: Yes (Disabling)
  Sender: FDA-Public Use
  Company Number: None

PATIENT
  Age: 64 Year
  Sex: Female
  Weight: 69.75 kg

DRUGS (5)
  1. LEVAQUIN [Suspect]
     Active Substance: LEVOFLOXACIN
     Indication: URINARY TRACT INFECTION
     Dosage: ?          QUANTITY:10 CAPSULE(S);?
     Dates: start: 20080909
  2. VITAMIN B12 [Concomitant]
     Active Substance: CYANOCOBALAMIN
  3. ACETYL CARNITINE [Concomitant]
  4. BIOTIN [Concomitant]
     Active Substance: BIOTIN
  5. MAGNESIUM [Concomitant]
     Active Substance: MAGNESIUM

REACTIONS (5)
  - Neuralgia [None]
  - Fatigue [None]
  - Paraesthesia [None]
  - Confusional state [None]
  - Neuropathy peripheral [None]

NARRATIVE: CASE EVENT DATE: 20080909
